FAERS Safety Report 14803926 (Version 5)
Quarter: 2020Q3

REPORT INFORMATION
  Report Type: Report from Study
  Country: US (occurrence: US)
  Receive Date: 20180425
  Receipt Date: 20190403
  Transmission Date: 20201105
  Serious: Yes (Death, Hospitalization)
  Sender: FDA-Public Use
  Company Number: US-ROCHE-2006056

PATIENT
  Age: 86 Year
  Sex: Female
  Weight: 79 kg

DRUGS (24)
  1. VENETOCLAX. [Suspect]
     Active Substance: VENETOCLAX
     Dosage: DATE OF MOST RECENT DOSE (600 MG) OF STUDY DRUG: 06/OCT/2017
     Route: 048
     Dates: start: 20170927
  2. VENETOCLAX. [Suspect]
     Active Substance: VENETOCLAX
     Dosage: DATE OF MOST RECENT DOSE (600 MG) OF STUDY DRUG: 06/OCT/2017
     Route: 048
     Dates: start: 20170928
  3. ROCURONIUM [Concomitant]
     Active Substance: ROCURONIUM BROMIDE
     Route: 042
     Dates: start: 20171017, end: 20171017
  4. VENETOCLAX. [Suspect]
     Active Substance: VENETOCLAX
     Indication: ACUTE MYELOID LEUKAEMIA
     Dosage: DATE OF MOST RECENT DOSE (600 MG) OF STUDY DRUG: 06/OCT/2017?DOSE AS PER PROTOCOL: VENETOCLAX WILL B
     Route: 048
     Dates: start: 20170925
  5. TADALAFIL. [Concomitant]
     Active Substance: TADALAFIL
     Indication: HYPERTENSION
  6. SULFAMETHOXAZOLE/TRIMETHOPRIM [Concomitant]
     Active Substance: SULFAMETHOXAZOLE\TRIMETHOPRIM
     Indication: INFECTION PROPHYLAXIS
     Route: 048
     Dates: start: 20171020, end: 20171025
  7. VENETOCLAX. [Suspect]
     Active Substance: VENETOCLAX
     Dosage: DATE OF MOST RECENT DOSE (600 MG) OF STUDY DRUG: 06/OCT/2017
     Route: 048
     Dates: start: 20170926
  8. VENETOCLAX. [Suspect]
     Active Substance: VENETOCLAX
     Dosage: THERAPY FROM 29/SEP/2017 TO 16/OCT/2017 WITH DOSE 600 MG, DATE OF MOST RECENT DOSE (600 MG) OF STUDY
     Route: 048
     Dates: start: 20170929
  9. SENNA [Concomitant]
     Active Substance: SENNA LEAF\SENNOSIDES\SENNOSIDES A AND B
     Indication: CONSTIPATION PROPHYLAXIS
     Route: 048
     Dates: start: 20170928, end: 20171025
  10. LASIX [Concomitant]
     Active Substance: FUROSEMIDE
     Indication: PULMONARY HYPERTENSION
     Route: 048
  11. LOPERAMIDE [Concomitant]
     Active Substance: LOPERAMIDE
     Indication: DIARRHOEA
     Dosage: 1 CAPSULE
     Route: 048
     Dates: start: 20170928
  12. ONDANSETRON [Concomitant]
     Active Substance: ONDANSETRON
     Indication: NAUSEA
     Route: 048
     Dates: start: 20171002
  13. TADALAFIL. [Concomitant]
     Active Substance: TADALAFIL
     Indication: PROPHYLAXIS
  14. SPIRONOLACTONE. [Concomitant]
     Active Substance: SPIRONOLACTONE
     Indication: PROPHYLAXIS
     Route: 048
     Dates: start: 20171010, end: 20171025
  15. LASIX [Concomitant]
     Active Substance: FUROSEMIDE
     Route: 048
     Dates: start: 20171002, end: 20171016
  16. ACYCLOVIR. [Concomitant]
     Active Substance: ACYCLOVIR
     Indication: INFECTION PROPHYLAXIS
     Route: 048
  17. ONDANSETRON [Concomitant]
     Active Substance: ONDANSETRON
     Indication: NAUSEA
  18. IDASANUTLIN. [Suspect]
     Active Substance: IDASANUTLIN
     Indication: ACUTE MYELOID LEUKAEMIA
     Dosage: DATE OF MOST RECENT DOSE (200 MG) OF STUDY DRUG PRIOR TO EVENT ONSET: 29/SEP/2017?DOSE AS PER PROTOC
     Route: 048
     Dates: start: 20170925
  19. TADALAFIL. [Concomitant]
     Active Substance: TADALAFIL
     Indication: PULMONARY HYPERTENSION
     Route: 048
     Dates: start: 20170925, end: 20171018
  20. AMLODIPINE [Concomitant]
     Active Substance: AMLODIPINE BESYLATE
     Indication: HYPERTENSION
     Route: 048
     Dates: start: 201709
  21. ALLOPURINOL. [Concomitant]
     Active Substance: ALLOPURINOL
     Indication: HYPERTENSION
     Route: 048
  22. LEVAQUIN [Concomitant]
     Active Substance: LEVOFLOXACIN
     Indication: INFECTION PROPHYLAXIS
     Route: 048
  23. SUCRALFATE. [Concomitant]
     Active Substance: SUCRALFATE
     Indication: PROPHYLAXIS
     Dosage: ROUTE: NG (NASOGASTRIC)
     Route: 065
     Dates: start: 20171017, end: 20171025
  24. LISINOPRIL. [Concomitant]
     Active Substance: LISINOPRIL
     Indication: HYPERTENSION
     Route: 048
     Dates: start: 201709

REACTIONS (1)
  - Pneumonia bacterial [Not Recovered/Not Resolved]

NARRATIVE: CASE EVENT DATE: 20171002
